FAERS Safety Report 6189565-X (Version None)
Quarter: 2009Q2

REPORT INFORMATION
  Report Type: 
  Country: None (occurrence: None)
  Receive Date: 20090512
  Receipt Date: 20090512
  Transmission Date: 20091009
  Serious: Yes (Life-Threatening, Hospitalization, Other)
  Sender: FDA-Public Use
  Company Number: None

PATIENT
  Age: 38 Year
  Sex: Female
  Weight: 111.1313 kg

DRUGS (1)
  1. YAZ [Suspect]
     Indication: POLYCYSTIC OVARIES
     Dosage: 1 PILL FOR 28 DAYS 1 TIME A DAY PO
     Route: 048
     Dates: start: 20090301, end: 20090507

REACTIONS (1)
  - TACHYCARDIA [None]
